FAERS Safety Report 25115774 (Version 2)
Quarter: 2025Q2

REPORT INFORMATION
  Report Type: Spontaneous
  Country: DE (occurrence: DE)
  Receive Date: 20250325
  Receipt Date: 20250403
  Transmission Date: 20250717
  Serious: Yes (Other)
  Sender: NOVO NORDISK
  Company Number: DE-NOVOPROD-1364833

PATIENT
  Age: 960 Month
  Sex: Male
  Weight: 108 kg

DRUGS (11)
  1. NOVORAPID [Suspect]
     Active Substance: INSULIN ASPART
     Indication: Type 2 diabetes mellitus
     Dosage: 55 IU, QD (ONLY 36 UNITS PER DAY (IN THE MORNING, AT LUNCH, IN THE EVENING, LATE EVENING)
     Dates: start: 202501
  2. TOUJEO [Concomitant]
     Active Substance: INSULIN GLARGINE
     Indication: Type 2 diabetes mellitus
  3. VALSARTAN [Concomitant]
     Active Substance: VALSARTAN
     Indication: Cardiac disorder
  4. VALSARTAN [Concomitant]
     Active Substance: VALSARTAN
     Indication: Blood pressure abnormal
     Dosage: 80 MG, BID (0-1-0-1)
  5. PREGABALIN [Suspect]
     Active Substance: PREGABALIN
     Indication: Sacral pain
     Dosage: 100 MG, BID (1-0-1-0, FOR TWO YEARS)
  6. CITALOPRAM [Concomitant]
     Active Substance: CITALOPRAM
     Indication: Mental disorder
     Dosage: 20 MG, QD (1-0-0-0)
  7. METAMIZOLE [Concomitant]
     Active Substance: METAMIZOLE
     Indication: Pain
  8. CARVEDILOL [Concomitant]
     Active Substance: CARVEDILOL
     Indication: Cardiac disorder
  9. CARVEDILOL [Concomitant]
     Active Substance: CARVEDILOL
     Indication: Blood pressure abnormal
     Dosage: 25 MG, BID (1-0-1-0)
  10. PHENPROCOUMON [Concomitant]
     Active Substance: PHENPROCOUMON
     Indication: Coagulopathy
  11. ATORIMIB [Concomitant]
     Indication: Body fat disorder

REACTIONS (14)
  - Arrhythmia [Unknown]
  - Blood glucose fluctuation [Unknown]
  - Blood glucose increased [Unknown]
  - Increased insulin requirement [Unknown]
  - Dizziness [Unknown]
  - Hypertension [Unknown]
  - Balance disorder [Unknown]
  - Visual impairment [Unknown]
  - Dry eye [Unknown]
  - Fatigue [Unknown]
  - Hypopnoea [Unknown]
  - Disturbance in attention [Unknown]
  - Rash [Unknown]
  - Drug ineffective [Unknown]
